FAERS Safety Report 8407380-0 (Version None)
Quarter: 2012Q2

REPORT INFORMATION
  Report Type: 
  Country: None (occurrence: None)
  Receive Date: 20120604
  Receipt Date: 20120523
  Transmission Date: 20120825
  Serious: Yes (Death, Life-Threatening)
  Sender: FDA-Public Use
  Company Number: JP-ROCHE-1070605

PATIENT
  Sex: Female

DRUGS (5)
  1. LOXONIN [Concomitant]
     Indication: PAIN
     Dosage: A DOSE
     Route: 048
     Dates: start: 20110706
  2. LYRICA [Concomitant]
     Indication: NEUROPATHY PERIPHERAL
     Route: 048
     Dates: start: 20110701, end: 20120412
  3. AVASTIN [Suspect]
     Indication: BREAST CANCER METASTATIC
     Route: 041
     Dates: start: 20120127, end: 20120406
  4. PACLITAXEL [Concomitant]
     Indication: BREAST CANCER METASTATIC
     Route: 041
     Dates: start: 20120127, end: 20120330
  5. MUCOSTA [Concomitant]
     Indication: GASTRITIS
     Route: 048
     Dates: start: 20111101

REACTIONS (2)
  - HEPATIC FAILURE [None]
  - DUODENAL PERFORATION [None]
